FAERS Safety Report 18368684 (Version 2)
Quarter: 2021Q2

REPORT INFORMATION
  Report Type: Report from Study
  Country: US (occurrence: US)
  Receive Date: 20201010
  Receipt Date: 20210409
  Transmission Date: 20210717
  Serious: No
  Sender: FDA-Public Use
  Company Number: US-B.I. PHARMACEUTICALS,INC./RIDGEFIELD-2020-BI-047500

PATIENT
  Age: 77 Year
  Sex: Male

DRUGS (2)
  1. OFEV [Suspect]
     Active Substance: NINTEDANIB
     Indication: PRODUCT USED FOR UNKNOWN INDICATION
     Dosage: 150 MG BID
     Route: 048
     Dates: start: 20200903, end: 20201015
  2. OFEV [Suspect]
     Active Substance: NINTEDANIB
     Dosage: 150MG ONE CAPSULES TWICE DAILY
     Route: 048
     Dates: start: 202009, end: 202010

REACTIONS (14)
  - Abnormal dreams [Not Recovered/Not Resolved]
  - Gastrointestinal disorder [Not Recovered/Not Resolved]
  - Hypertension [Unknown]
  - Cough [Recovering/Resolving]
  - Dyspnoea [Recovering/Resolving]
  - Taste disorder [Unknown]
  - Blood pressure increased [Unknown]
  - Fatigue [Unknown]
  - Gastrointestinal disorder [Unknown]
  - Insomnia [Unknown]
  - Oxygen saturation increased [Unknown]
  - Abdominal pain [Unknown]
  - Abdominal pain upper [Not Recovered/Not Resolved]
  - Hypertension [Not Recovered/Not Resolved]

NARRATIVE: CASE EVENT DATE: 202009
